FAERS Safety Report 19361480 (Version 2)
Quarter: 2021Q2

REPORT INFORMATION
  Report Type: Report from Study
  Country: KR (occurrence: KR)
  Receive Date: 20210603
  Receipt Date: 20210605
  Transmission Date: 20210717
  Serious: Yes (Other)
  Sender: FDA-Public Use
  Company Number: KR-AMGEN-KORCT2021084170

PATIENT
  Age: 69 Year
  Sex: Male

DRUGS (65)
  1. DECITABINE. [Concomitant]
     Active Substance: DECITABINE
     Dosage: 20 UNK, QD
     Dates: start: 20110217, end: 20110217
  2. AMOXICILLIN. [Concomitant]
     Active Substance: AMOXICILLIN
     Dosage: 1875 MILLIGRAM
     Dates: start: 20110330, end: 20110411
  3. CEFTAZIDIME. [Concomitant]
     Active Substance: CEFTAZIDIME
     Dosage: 6000 MILLIGRAM
     Dates: start: 20110215, end: 20110217
  4. CEFTAZIDIME. [Concomitant]
     Active Substance: CEFTAZIDIME
     Dosage: 6000 MILLIGRAM
     Dates: start: 20110314, end: 20110317
  5. CHLORPHENAMINE [Concomitant]
     Active Substance: CHLORPHENIRAMINE MALEATE
     Dosage: 4 MILLIGRAM
     Dates: start: 20110224, end: 20110224
  6. CHLORPHENAMINE [Concomitant]
     Active Substance: CHLORPHENIRAMINE MALEATE
     Dosage: 4 MILLIGRAM
     Dates: start: 20110403, end: 20110403
  7. CHLORPHENAMINE [Concomitant]
     Active Substance: CHLORPHENIRAMINE MALEATE
     Dosage: 4 MILLIGRAM
     Dates: start: 20110425, end: 20110425
  8. HYDROCORTISONE. [Concomitant]
     Active Substance: HYDROCORTISONE
     Indication: PRODUCT USED FOR UNKNOWN INDICATION
     Dosage: 100 MILLIGRAM
     Dates: start: 20110320, end: 20110320
  9. DECITABINE. [Concomitant]
     Active Substance: DECITABINE
     Dosage: 20 UNK, QD
     Dates: start: 20110331, end: 20110331
  10. ACICLOVIR [Concomitant]
     Active Substance: ACYCLOVIR
     Dosage: 800 MILLIGRAM
     Dates: start: 20110310, end: 20110329
  11. CEFAZOLIN [Concomitant]
     Active Substance: CEFAZOLIN
     Dosage: 4000 MILLIGRAM
     Dates: start: 20110315, end: 20110315
  12. LOPERAMIDE OXIDE [Concomitant]
     Active Substance: LOPERAMIDE OXIDE
     Indication: PRODUCT USED FOR UNKNOWN INDICATION
     Dosage: 1 MILLIGRAM
     Dates: start: 20110411
  13. METRONIDAZOLE. [Concomitant]
     Active Substance: METRONIDAZOLE
     Dosage: 200 MILLIGRAM
     Dates: start: 20110321, end: 20110321
  14. ONDANSETRON [Concomitant]
     Active Substance: ONDANSETRON
     Dosage: 16 MILLIGRAM
     Dates: start: 20110217, end: 20110218
  15. DECITABINE. [Concomitant]
     Active Substance: DECITABINE
     Dosage: 20 UNK, QD
     Dates: start: 20110218, end: 20110218
  16. DECITABINE. [Concomitant]
     Active Substance: DECITABINE
     Dosage: 20 UNK, QD
     Dates: start: 20110220, end: 20110220
  17. AMOXICILLIN. [Concomitant]
     Active Substance: AMOXICILLIN
     Indication: PRODUCT USED FOR UNKNOWN INDICATION
     Dosage: 1250 MILLIGRAM
     Dates: start: 20110325, end: 20110326
  18. CEFAZOLIN [Concomitant]
     Active Substance: CEFAZOLIN
     Dosage: 2000 MILLIGRAM
     Dates: start: 20110317, end: 20110317
  19. CEFEPIME [Concomitant]
     Active Substance: CEFEPIME HYDROCHLORIDE
     Indication: PRODUCT USED FOR UNKNOWN INDICATION
     Dosage: 4000 MILLIGRAM
     Dates: start: 20110318, end: 20110318
  20. CHLORPHENAMINE [Concomitant]
     Active Substance: CHLORPHENIRAMINE MALEATE
     Dosage: 4 MILLIGRAM
     Dates: start: 20110418, end: 20110418
  21. MEGESTROL [Concomitant]
     Active Substance: MEGESTROL
     Indication: PRODUCT USED FOR UNKNOWN INDICATION
     Dosage: 20 UNK
     Dates: start: 20110402, end: 20110410
  22. POVIDONE?IODINE. [Concomitant]
     Active Substance: POVIDONE-IODINE
     Indication: PRODUCT USED FOR UNKNOWN INDICATION
     Dosage: 100, UNK
     Dates: start: 20110329, end: 20110410
  23. FILGRASTIM [Suspect]
     Active Substance: FILGRASTIM
     Indication: PRODUCT USED FOR UNKNOWN INDICATION
     Dosage: 300 UNK
     Route: 065
     Dates: start: 20110324, end: 20110325
  24. DECITABINE. [Concomitant]
     Active Substance: DECITABINE
     Dosage: 20 UNK, QD
     Dates: start: 20110330, end: 20110330
  25. AMOXICILLIN. [Concomitant]
     Active Substance: AMOXICILLIN
     Dosage: 1875 MILLIGRAM
     Dates: start: 20110326, end: 20110329
  26. CHLORPHENAMINE [Concomitant]
     Active Substance: CHLORPHENIRAMINE MALEATE
     Dosage: 2 MILLIGRAM
     Dates: start: 20110331, end: 20110331
  27. CHLORPHENAMINE [Concomitant]
     Active Substance: CHLORPHENIRAMINE MALEATE
     Dosage: 4 MILLIGRAM
     Dates: start: 20110422, end: 20110422
  28. ITRACONAZOLE. [Concomitant]
     Active Substance: ITRACONAZOLE
     Indication: PRODUCT USED FOR UNKNOWN INDICATION
     Dosage: 40, UNK
     Dates: start: 20110224, end: 20110302
  29. ITRACONAZOLE. [Concomitant]
     Active Substance: ITRACONAZOLE
     Dosage: 40, UNK
     Dates: start: 20110330, end: 20110427
  30. FILGRASTIM [Suspect]
     Active Substance: FILGRASTIM
     Dosage: 300 UNK
     Route: 065
     Dates: start: 20110411, end: 20110411
  31. DECITABINE. [Concomitant]
     Active Substance: DECITABINE
     Indication: PRODUCT USED FOR UNKNOWN INDICATION
     Dosage: 20 UNK, QD
     Dates: start: 20110216, end: 20110216
  32. CEFAZOLIN [Concomitant]
     Active Substance: CEFAZOLIN
     Indication: PRODUCT USED FOR UNKNOWN INDICATION
     Dosage: 2000 MILLIGRAM
     Dates: start: 20110314, end: 20110314
  33. CHLORPHENAMINE [Concomitant]
     Active Substance: CHLORPHENIRAMINE MALEATE
     Dosage: 4 MILLIGRAM
     Dates: start: 20110314, end: 20110314
  34. CHLORPHENAMINE [Concomitant]
     Active Substance: CHLORPHENIRAMINE MALEATE
     Dosage: 4 MILLIGRAM
     Dates: start: 20110325, end: 20110325
  35. CHLORPHENAMINE [Concomitant]
     Active Substance: CHLORPHENIRAMINE MALEATE
     Dosage: 4 MILLIGRAM
     Dates: start: 20110330, end: 20110330
  36. METRONIDAZOLE. [Concomitant]
     Active Substance: METRONIDAZOLE
     Indication: PRODUCT USED FOR UNKNOWN INDICATION
     Dosage: 500 MILLIGRAM
     Dates: start: 20110322, end: 20110322
  37. METRONIDAZOLE. [Concomitant]
     Active Substance: METRONIDAZOLE
     Dosage: 1500 MILLIGRAM
     Dates: start: 20110320, end: 20110320
  38. TRAMADOL. [Concomitant]
     Active Substance: TRAMADOL
     Indication: PRODUCT USED FOR UNKNOWN INDICATION
     Dosage: 100 MILLIGRAM
     Dates: start: 20110314, end: 20110316
  39. TRANEXAMIC ACID. [Concomitant]
     Active Substance: TRANEXAMIC ACID
     Indication: PRODUCT USED FOR UNKNOWN INDICATION
     Dosage: 750 MILLIGRAM
     Dates: start: 20110310, end: 20110314
  40. FILGRASTIM [Suspect]
     Active Substance: FILGRASTIM
     Dosage: 300 UNK
     Route: 065
     Dates: start: 20110424, end: 20110424
  41. DECITABINE. [Concomitant]
     Active Substance: DECITABINE
     Dosage: 20 UNK, QD
     Dates: start: 20110219, end: 20110219
  42. DECITABINE. [Concomitant]
     Active Substance: DECITABINE
     Dosage: 20 UNK, QD
     Dates: start: 20110329, end: 20110329
  43. DECITABINE. [Concomitant]
     Active Substance: DECITABINE
     Dosage: 20 UNK, QD
     Dates: start: 20110401, end: 20110401
  44. ACICLOVIR [Concomitant]
     Active Substance: ACYCLOVIR
     Indication: PRODUCT USED FOR UNKNOWN INDICATION
     Dosage: 800 MILLIGRAM
     Dates: start: 20110224, end: 20110302
  45. CEFEPIME [Concomitant]
     Active Substance: CEFEPIME HYDROCHLORIDE
     Dosage: 6000 MILLIGRAM
     Dates: start: 20110319, end: 20110324
  46. CHLORPHENAMINE [Concomitant]
     Active Substance: CHLORPHENIRAMINE MALEATE
     Indication: PRODUCT USED FOR UNKNOWN INDICATION
     Dosage: 4 MILLIGRAM
     Dates: start: 20110216, end: 20110216
  47. CHLORPHENAMINE [Concomitant]
     Active Substance: CHLORPHENIRAMINE MALEATE
     Dosage: 4 MILLIGRAM
     Dates: start: 20110302, end: 20110302
  48. CHLORPHENAMINE [Concomitant]
     Active Substance: CHLORPHENIRAMINE MALEATE
     Dosage: 4 MILLIGRAM
     Dates: start: 20110307, end: 20110307
  49. CHLORPHENAMINE [Concomitant]
     Active Substance: CHLORPHENIRAMINE MALEATE
     Dosage: 4 MILLIGRAM
     Dates: start: 20110319, end: 20110319
  50. CHLORPHENAMINE [Concomitant]
     Active Substance: CHLORPHENIRAMINE MALEATE
     Dosage: 4 MILLIGRAM
     Dates: start: 20110323, end: 20110323
  51. CHLORPHENAMINE [Concomitant]
     Active Substance: CHLORPHENIRAMINE MALEATE
     Dosage: 4 MILLIGRAM
     Dates: start: 20110411, end: 20110411
  52. CIPROFLOXACIN. [Concomitant]
     Active Substance: CIPROFLOXACIN
     Indication: PRODUCT USED FOR UNKNOWN INDICATION
     Dosage: 1000 MILLIGRAM
     Dates: start: 20110224, end: 20110302
  53. CIPROFLOXACIN. [Concomitant]
     Active Substance: CIPROFLOXACIN
     Dosage: 1000 MILLIGRAM
     Dates: start: 20110330, end: 20110427
  54. METOCLOPRAMIDE. [Concomitant]
     Active Substance: METOCLOPRAMIDE
     Indication: PRODUCT USED FOR UNKNOWN INDICATION
     Dosage: 20 MILLIGRAM
     Dates: start: 20110401, end: 20110401
  55. ONDANSETRON [Concomitant]
     Active Substance: ONDANSETRON
     Indication: PRODUCT USED FOR UNKNOWN INDICATION
     Dosage: 8 MILLIGRAM
     Dates: start: 20110216, end: 20110216
  56. FILGRASTIM [Suspect]
     Active Substance: FILGRASTIM
     Dosage: 300 UNK
     Route: 065
     Dates: start: 20110418, end: 20110418
  57. DECITABINE. [Concomitant]
     Active Substance: DECITABINE
     Dosage: 20 UNK, QD
     Dates: start: 20110328, end: 20110328
  58. ACICLOVIR [Concomitant]
     Active Substance: ACYCLOVIR
     Dosage: 800 MILLIGRAM
     Dates: start: 20110330, end: 20110427
  59. ITRACONAZOLE. [Concomitant]
     Active Substance: ITRACONAZOLE
     Dosage: 40, UNK
     Dates: start: 20110310, end: 20110329
  60. CEFAZOLIN [Concomitant]
     Active Substance: CEFAZOLIN
     Dosage: 4000 MILLIGRAM
     Dates: start: 20110318, end: 20110318
  61. CEFAZOLIN [Concomitant]
     Active Substance: CEFAZOLIN
     Dosage: 6000 MILLIGRAM
     Dates: start: 20110316, end: 20110316
  62. CEFTAZIDIME. [Concomitant]
     Active Substance: CEFTAZIDIME
     Indication: PRODUCT USED FOR UNKNOWN INDICATION
     Dosage: 4000 MILLIGRAM
     Dates: start: 20110218, end: 20110218
  63. CHLORPHENAMINE [Concomitant]
     Active Substance: CHLORPHENIRAMINE MALEATE
     Dosage: 4 MILLIGRAM
     Dates: start: 20110223, end: 20110223
  64. CIPROFLOXACIN. [Concomitant]
     Active Substance: CIPROFLOXACIN
     Dosage: 1000 MILLIGRAM
     Dates: start: 20110310, end: 20110329
  65. SODIUM BICARBONATE. [Concomitant]
     Active Substance: SODIUM BICARBONATE
     Indication: PRODUCT USED FOR UNKNOWN INDICATION
     Dosage: 500, UNK
     Dates: start: 20110307, end: 20110310

REACTIONS (13)
  - Neutrophil count decreased [Recovered/Resolved]
  - Arthralgia [Recovered/Resolved]
  - Gingival bleeding [Recovered/Resolved]
  - Cough [Recovered/Resolved]
  - Dyspnoea [Recovered/Resolved]
  - Platelet count decreased [Recovered/Resolved]
  - Urticaria [Recovered/Resolved]
  - Gingival pain [Recovered/Resolved]
  - Sputum increased [Recovered/Resolved]
  - Febrile neutropenia [Recovered/Resolved]
  - Anaemia [Recovered/Resolved]
  - Blood bilirubin increased [Recovered/Resolved]
  - Diarrhoea [Recovered/Resolved]

NARRATIVE: CASE EVENT DATE: 20110215
